FAERS Safety Report 5756290-6 (Version None)
Quarter: 2008Q2

REPORT INFORMATION
  Report Type: 
  Country: None (occurrence: None)
  Receive Date: 20080528
  Receipt Date: 20080528
  Transmission Date: 20081010
  Serious: Yes (Other)
  Sender: FDA-Public Use
  Company Number: None

PATIENT
  Age: 14 Year
  Sex: Female
  Weight: 56.6996 kg

DRUGS (1)
  1. XYZAL [Suspect]
     Indication: HYPERSENSITIVITY
     Dosage: 5 MG 1 PER DAY PO
     Route: 048
     Dates: start: 20080507, end: 20080521

REACTIONS (5)
  - AMENORRHOEA [None]
  - DIZZINESS [None]
  - PRESYNCOPE [None]
  - VERBIGERATION [None]
  - VISUAL DISTURBANCE [None]
